FAERS Safety Report 8408301-7 (Version None)
Quarter: 2012Q2

REPORT INFORMATION
  Report Type: 
  Country: None (occurrence: None)
  Receive Date: 20120604
  Receipt Date: 20120529
  Transmission Date: 20120825
  Serious: No
  Sender: FDA-Public Use
  Company Number: US-PFIZER INC-2012130058

PATIENT
  Sex: Female
  Weight: 92.517 kg

DRUGS (3)
  1. PREMARIN [Suspect]
     Indication: HORMONE REPLACEMENT THERAPY
     Dosage: DAILY
     Route: 067
     Dates: end: 20110101
  2. PREMARIN [Suspect]
     Dosage: 0.625 MG, DAILY
     Route: 048
     Dates: end: 20110101
  3. BENICAR [Concomitant]
     Indication: HYPERTENSION
     Dosage: 12.5 MG, DAILY

REACTIONS (2)
  - NIGHT SWEATS [None]
  - VULVOVAGINAL DRYNESS [None]
